FAERS Safety Report 16141461 (Version 1)
Quarter: 2019Q2

REPORT INFORMATION
  Report Type: Report from Study
  Country: US (occurrence: US)
  Receive Date: 20190401
  Receipt Date: 20190401
  Transmission Date: 20190711
  Serious: No
  Sender: FDA-Public Use
  Company Number: US-ALEXION PHARMACEUTICALS INC.-A201904645

PATIENT
  Sex: Female

DRUGS (1)
  1. STRENSIQ [Suspect]
     Active Substance: ASFOTASE ALFA
     Indication: HYPOPHOSPHATASIA
     Dosage: UNK, 3 TIMES A WEEK
     Route: 058

REACTIONS (5)
  - Loss of personal independence in daily activities [Unknown]
  - Bone pain [Unknown]
  - Pain in extremity [Not Recovered/Not Resolved]
  - Hypermobility syndrome [Unknown]
  - Emotional disorder [Unknown]
